FAERS Safety Report 23334797 (Version 9)
Quarter: 2025Q3

REPORT INFORMATION
  Report Type: Other
  Country: US (occurrence: US)
  Receive Date: 20231224
  Receipt Date: 20250810
  Transmission Date: 20251020
  Serious: Yes (Other)
  Sender: TRAVERE THERAPEUTICS
  Company Number: US-TRAVERE-2023TVT00817

PATIENT
  Age: 75 Year
  Sex: Male

DRUGS (3)
  1. FILSPARI [Suspect]
     Active Substance: SPARSENTAN
     Indication: Haematuria
     Dosage: LOT NUMBER: 1976070, EXPIRY DATE: 31-AUG-2025?LOT NUMBER: 1976071, EXPIRY DATE: NOT REPORTED?LOT NUM
     Route: 048
     Dates: start: 202310
  2. FILSPARI [Suspect]
     Active Substance: SPARSENTAN
     Indication: IgA nephropathy
  3. VITAMINS [Concomitant]
     Active Substance: VITAMINS

REACTIONS (6)
  - Cerebrovascular accident [Unknown]
  - Pituitary tumour [None]
  - Decreased appetite [Unknown]
  - Joint swelling [Recovered/Resolved]
  - Weight decreased [Unknown]
  - Gynaecomastia [Unknown]
